FAERS Safety Report 9746018 (Version 1)
Quarter: 2013Q4

REPORT INFORMATION
  Report Type: Report from Study
  Country: US (occurrence: US)
  Receive Date: 20131211
  Receipt Date: 20131211
  Transmission Date: 20140711
  Serious: Yes (Hospitalization)
  Sender: FDA-Public Use
  Company Number: PHEH2013US025513

PATIENT
  Sex: Female

DRUGS (2)
  1. MYFORTIC [Suspect]
     Indication: HEART TRANSPLANT
     Dosage: UNK UKN, UNK
     Route: 048
     Dates: start: 201004
  2. MYFORTIC [Suspect]
     Dosage: 1 TABLET (360 MG), BID
     Route: 048

REACTIONS (2)
  - Cardiac failure [Unknown]
  - Heart transplant rejection [Unknown]
